FAERS Safety Report 6028530-X (Version None)
Quarter: 2008Q4

REPORT INFORMATION
  Report Type: 
  Country: None (occurrence: None)
  Receive Date: 20081231
  Receipt Date: 20081231
  Transmission Date: 20090506
  Serious: Yes (Hospitalization, Other)
  Sender: FDA-Public Use
  Company Number: None

PATIENT
  Age: 60 Year
  Sex: Male

DRUGS (1)
  1. TIGECYCLINE [Suspect]
     Indication: OSTEOMYELITIS
     Dosage: 50 MG BID IV
     Route: 042
     Dates: start: 20080427, end: 20080524

REACTIONS (1)
  - PANCREATITIS [None]
